FAERS Safety Report 6066602-4 (Version None)
Quarter: 2009Q1

REPORT INFORMATION
  Report Type: 
  Country: None (occurrence: None)
  Receive Date: 20090205
  Receipt Date: 20090128
  Transmission Date: 20090719
  Serious: Yes (Other)
  Sender: FDA-Public Use
  Company Number: B0556297A

PATIENT
  Age: 68 Year
  Sex: Female

DRUGS (6)
  1. SERETIDE [Suspect]
     Indication: ASTHMA
     Dosage: 1PUFF TWICE PER DAY
     Route: 055
  2. VENTOLIN [Suspect]
     Indication: ASTHMA
     Dosage: 100MCG AS REQUIRED
     Route: 055
  3. THYROXINE [Suspect]
     Indication: HYPOTHYROIDISM
     Dosage: 100MCG PER DAY
     Dates: start: 20000101
  4. PROZAC [Suspect]
     Indication: DEPRESSION
  5. SINGULAIR [Suspect]
     Indication: ASTHMA
  6. TEMAZEPAM [Suspect]
     Indication: INSOMNIA

REACTIONS (5)
  - CONDITION AGGRAVATED [None]
  - LOWER RESPIRATORY TRACT INFECTION [None]
  - PRODUCTIVE COUGH [None]
  - SKIN CANCER [None]
  - SKIN PAPILLOMA [None]
